FAERS Safety Report 10932438 (Version 1)
Quarter: 2015Q1

REPORT INFORMATION
  Report Type: Spontaneous
  Country: None (occurrence: None)
  Receive Date: 20150319
  Receipt Date: 20150319
  Transmission Date: 20150721
  Serious: Yes (Other)
  Sender: FDA-Public Use
  Company Number: None

PATIENT
  Age: 64 Year
  Sex: Female
  Weight: 101 kg

DRUGS (8)
  1. LISINOPRIL (PRINIVIL, ZESTRIL) [Concomitant]
  2. PRAVASTATIN (PRAVACHOL) [Concomitant]
  3. BYETTA [Suspect]
     Active Substance: EXENATIDE
     Indication: TYPE 2 DIABETES MELLITUS
     Dosage: FEW MONTHS
     Route: 058
  4. CANAGLIFOZIN (INVOKANA) [Concomitant]
  5. METFORMIN (GLUCOPHAGE) [Concomitant]
  6. AMLODIPINE (NORVASC) [Concomitant]
  7. BYETTA [Concomitant]
     Active Substance: EXENATIDE
  8. LANTUS [Concomitant]
     Active Substance: INSULIN GLARGINE

REACTIONS (1)
  - Pancreatitis acute [None]

NARRATIVE: CASE EVENT DATE: 20150315
